FAERS Safety Report 20916713 (Version 9)
Quarter: 2022Q4

REPORT INFORMATION
  Report Type: Report from Study
  Country: CN (occurrence: CN)
  Receive Date: 20220605
  Receipt Date: 20221103
  Transmission Date: 20230112
  Serious: Yes (Death, Life-Threatening, Hospitalization)
  Sender: FDA-Public Use
  Company Number: CN-JNJFOC-20220559619

PATIENT
  Age: 78 Year
  Sex: Male
  Weight: 67.5 kg

DRUGS (13)
  1. AMIVANTAMAB [Suspect]
     Active Substance: AMIVANTAMAB
     Indication: Non-small cell lung cancer metastatic
     Route: 042
     Dates: start: 20220310, end: 20220519
  2. DICLOFENAC SODIUM [Concomitant]
     Active Substance: DICLOFENAC SODIUM
     Indication: Musculoskeletal pain
     Route: 048
     Dates: start: 20220214
  3. DESONIDE [Concomitant]
     Active Substance: DESONIDE
     Indication: Rash
     Route: 061
     Dates: start: 20220331
  4. MINOCYCLINE HYDROCHLORIDE [Concomitant]
     Active Substance: MINOCYCLINE HYDROCHLORIDE
     Indication: Rash
     Route: 048
     Dates: start: 20220416
  5. PROPOFOL [Concomitant]
     Active Substance: PROPOFOL
     Indication: Anaesthesia
     Route: 042
     Dates: start: 20220526, end: 20220610
  6. ALBUMIN HUMAN [Concomitant]
     Active Substance: ALBUMIN HUMAN
     Indication: Hypoproteinaemia
     Route: 042
     Dates: start: 20220530, end: 20220606
  7. BUTORPHANOL TARTRATE [Concomitant]
     Active Substance: BUTORPHANOL TARTRATE
     Indication: Analgesic therapy
     Route: 042
     Dates: start: 20220530, end: 20220612
  8. GLUTATHIONE [Concomitant]
     Active Substance: GLUTATHIONE
     Indication: Liver injury
     Route: 042
     Dates: start: 20220603, end: 20220612
  9. PANTOPRAZOLE SODIUM [Concomitant]
     Active Substance: PANTOPRAZOLE SODIUM
     Indication: Gastrointestinal disorder therapy
     Route: 042
     Dates: start: 20220526, end: 20220530
  10. MIDAZOLAM [Concomitant]
     Active Substance: MIDAZOLAM
     Indication: Sedation
     Route: 042
     Dates: start: 20220526, end: 20220526
  11. PENICILLIN G SODIUM [Concomitant]
     Active Substance: PENICILLIN G SODIUM
     Indication: Skin test
     Dosage: 800000 (DOSE UNIT NOT PROVIDED)
     Route: 058
     Dates: start: 20220526, end: 20220526
  12. LIDOCAINE HYDROCHLORIDE [Concomitant]
     Active Substance: LIDOCAINE HYDROCHLORIDE
     Indication: Local anaesthesia
     Route: 058
     Dates: start: 20220526, end: 20220526
  13. SUFENTANIL CITRATE [Concomitant]
     Active Substance: SUFENTANIL CITRATE
     Indication: Anaesthesia procedure
     Route: 042
     Dates: start: 20220526, end: 20220526

REACTIONS (5)
  - Pneumonia [Fatal]
  - Pneumonitis [Not Recovered/Not Resolved]
  - Cardiac failure [Not Recovered/Not Resolved]
  - Pneumothorax [Recovered/Resolved]
  - Cerebral thrombosis [Not Recovered/Not Resolved]

NARRATIVE: CASE EVENT DATE: 20220526
